FAERS Safety Report 13810252 (Version 1)
Quarter: 2017Q3

REPORT INFORMATION
  Report Type: Spontaneous
  Country: US (occurrence: US)
  Receive Date: 20170728
  Receipt Date: 20170728
  Transmission Date: 20171127
  Serious: Yes (Other)
  Sender: FDA-Public Use
  Company Number: US-PFIZER INC-2017324900

PATIENT
  Sex: Male

DRUGS (2)
  1. FENTANYL CITRATE. [Suspect]
     Active Substance: FENTANYL CITRATE
     Dosage: 25MCG/HR
  2. SULFASALAZINE. [Suspect]
     Active Substance: SULFASALAZINE
     Dosage: 1500 MG, 2X/DAY

REACTIONS (21)
  - Musculoskeletal stiffness [Unknown]
  - Platelet count increased [Unknown]
  - Basophil count increased [Unknown]
  - Joint swelling [Unknown]
  - Weight increased [Unknown]
  - Alanine aminotransferase decreased [Unknown]
  - Dyspnoea exertional [Unknown]
  - Blood pressure increased [Unknown]
  - Nodule [Unknown]
  - Blood bilirubin decreased [Unknown]
  - Red blood cell sedimentation rate increased [Unknown]
  - Arthropathy [Unknown]
  - Foot deformity [Unknown]
  - Red cell distribution width increased [Unknown]
  - Blood urea increased [Unknown]
  - Arthralgia [Unknown]
  - Blood glucose decreased [Unknown]
  - Neutrophil count increased [Unknown]
  - Knee deformity [Unknown]
  - Blood albumin decreased [Unknown]
  - C-reactive protein increased [Unknown]
